FAERS Safety Report 11646855 (Version 2)
Quarter: 2016Q1

REPORT INFORMATION
  Report Type: Spontaneous
  Country: US (occurrence: US)
  Receive Date: 20151020
  Receipt Date: 20160114
  Transmission Date: 20160525
  Serious: Yes (Hospitalization)
  Sender: FDA-Public Use
  Company Number: US-ROCHE-ITM201504IM014784

PATIENT
  Age: 80 Year
  Sex: Female
  Weight: 49.03 kg

DRUGS (22)
  1. ESBRIET [Suspect]
     Active Substance: PIRFENIDONE
     Indication: IDIOPATHIC PULMONARY FIBROSIS
     Dosage: 3 CAPSULES THREE TIMES A DAY
     Route: 048
     Dates: start: 20150312
  2. IMURAN [Concomitant]
     Active Substance: AZATHIOPRINE
     Route: 065
  3. EVISTA [Concomitant]
     Active Substance: RALOXIFENE HYDROCHLORIDE
     Route: 048
  4. ESBRIET [Suspect]
     Active Substance: PIRFENIDONE
     Route: 048
  5. SYNVISC [Concomitant]
     Active Substance: HYALURONATE SODIUM
     Route: 065
  6. AMOXICILLIN. [Concomitant]
     Active Substance: AMOXICILLIN
  7. NIZORAL [Concomitant]
     Active Substance: KETOCONAZOLE
     Dosage: APPLY SPARINGLY WHEN SHAMPOOING HAIR EVERY OTHER DAY USE DOUBLE APPLICATION.
     Route: 065
  8. PERCOCET [Concomitant]
     Active Substance: ACETAMINOPHEN\OXYCODONE HYDROCHLORIDE
     Dosage: 5-325 MG TABLETS. TWO TABLETS BY MOUTH EVERY 6 HOURS AS NEEDED.
     Route: 048
  9. METROGEL [Concomitant]
     Active Substance: METRONIDAZOLE
     Dosage: APPLY TWICE DAILY SPARINGLY.
     Route: 065
  10. FLONASE (UNITED STATES) [Concomitant]
     Dosage: ONE SPRAY IN EACH NOSTRIL DAILY AT BED TIME.
     Route: 065
  11. PREDNISONE. [Concomitant]
     Active Substance: PREDNISONE
  12. COUMADIN [Concomitant]
     Active Substance: WARFARIN SODIUM
     Dosage: 7.5 MG DAILY EXCEPT 5 MG SUNDAY, TUESDAY AND FRIDAY.
     Route: 065
  13. SYNVISC [Concomitant]
     Active Substance: HYALURONATE SODIUM
     Dosage: PAST
     Route: 065
  14. TAPAZOLE [Concomitant]
     Active Substance: METHIMAZOLE
     Dosage: HALF TABLET ON MONDAY, WED AND FRIDAY AND SATURDAY.
     Route: 065
  15. ESBRIET [Suspect]
     Active Substance: PIRFENIDONE
     Route: 048
  16. BACTRIM [Suspect]
     Active Substance: SULFAMETHOXAZOLE\TRIMETHOPRIM
     Indication: PRODUCT USED FOR UNKNOWN INDICATION
     Route: 065
  17. DELTASONE (UNITED STATES) [Concomitant]
     Dosage: EVERY 48 HOURS.
     Route: 065
  18. ZOFRAN [Concomitant]
     Active Substance: ONDANSETRON HYDROCHLORIDE
     Indication: NAUSEA
     Route: 065
  19. LOPRESSOR [Concomitant]
     Active Substance: METOPROLOL TARTRATE
     Route: 048
  20. NORVASC [Concomitant]
     Active Substance: AMLODIPINE BESYLATE
     Route: 048
  21. PRAVACHOL [Concomitant]
     Active Substance: PRAVASTATIN SODIUM
     Dosage: AT BED TIME.
     Route: 048
  22. ASPIRIN. [Concomitant]
     Active Substance: ASPIRIN
     Route: 065

REACTIONS (9)
  - Oxygen consumption [Unknown]
  - Nausea [Unknown]
  - Decreased appetite [Unknown]
  - Back disorder [Unknown]
  - Drug hypersensitivity [Unknown]
  - Cough [Unknown]
  - Weight decreased [Unknown]
  - Dysgeusia [Unknown]
  - Dyspnoea [Unknown]

NARRATIVE: CASE EVENT DATE: 20151211
